FAERS Safety Report 14708355 (Version 1)
Quarter: 2018Q2

REPORT INFORMATION
  Report Type: Spontaneous
  Country: US (occurrence: US)
  Receive Date: 20180403
  Receipt Date: 20180403
  Transmission Date: 20180711
  Serious: Yes (Other)
  Sender: FDA-Public Use
  Company Number: US-ROCHE-2098652

PATIENT
  Age: 53 Year
  Sex: Female

DRUGS (1)
  1. KLONOPIN [Suspect]
     Active Substance: CLONAZEPAM
     Indication: ANXIETY
     Route: 048

REACTIONS (10)
  - Foot operation [Unknown]
  - Meniere^s disease [Unknown]
  - Vertigo [Unknown]
  - Malaise [Not Recovered/Not Resolved]
  - Confusional state [Unknown]
  - Knee operation [Unknown]
  - Tinnitus [Unknown]
  - Pain [Unknown]
  - Stress [Unknown]
  - Dizziness [Unknown]

NARRATIVE: CASE EVENT DATE: 201705
